FAERS Safety Report 8213727-0 (Version None)
Quarter: 2012Q1

REPORT INFORMATION
  Report Type: 
  Country: None (occurrence: None)
  Receive Date: 20120315
  Receipt Date: 20120306
  Transmission Date: 20120608
  Serious: Yes (Other)
  Sender: FDA-Public Use
  Company Number: US-ASTRAZENECA-2012SE15574

PATIENT
  Age: 63 Year

DRUGS (11)
  1. CRESTOR [Suspect]
     Route: 048
  2. METOPROLOL SUCCINATE [Concomitant]
  3. LYRICA [Concomitant]
     Dates: start: 20110303
  4. PREVACID [Concomitant]
  5. LISINOPRIL [Suspect]
     Route: 048
  6. LANTUS [Concomitant]
     Dosage: 20 UNITS QHS
  7. DIAZEPAM [Concomitant]
  8. SIMVASTATIN [Concomitant]
     Dosage: 40 TO 20 MG QD
  9. ASPIRIN [Concomitant]
  10. IBUPROFEN [Concomitant]
  11. FUROSEMIDE [Concomitant]

REACTIONS (9)
  - MYOCARDIAL INFARCTION [None]
  - HYPERTENSION [None]
  - NEUROPATHY PERIPHERAL [None]
  - TYPE 2 DIABETES MELLITUS [None]
  - DIABETIC NEUROPATHY [None]
  - DYSLIPIDAEMIA [None]
  - DIABETES MELLITUS [None]
  - CORONARY ARTERY DISEASE [None]
  - PAIN IN EXTREMITY [None]
